FAERS Safety Report 19925654 (Version 1)
Quarter: 2021Q4

REPORT INFORMATION
  Report Type: Spontaneous
  Country: ES (occurrence: ES)
  Receive Date: 20211006
  Receipt Date: 20211006
  Transmission Date: 20220303
  Serious: Yes (Other)
  Sender: FDA-Public Use
  Company Number: ES-TEVA-2021-ES-1919842

PATIENT
  Age: 8 Year
  Sex: Male

DRUGS (5)
  1. TACROLIMUS [Suspect]
     Active Substance: TACROLIMUS
     Indication: Immunosuppressant drug therapy
     Dosage: UNK
     Route: 065
  2. ALBENDAZOLE [Suspect]
     Active Substance: ALBENDAZOLE
     Indication: Strongyloidiasis
     Dosage: UNK (COMBINED REGIMEN OF ALBENDAZOLE AND IVERMECTIN)
     Route: 065
  3. IVERMECTIN [Suspect]
     Active Substance: IVERMECTIN
     Indication: Strongyloidiasis
     Dosage: 0.2 MILLIGRAM/KILOGRAM, QD (.2 MG/KG DAILY;)
     Route: 065
  4. IVERMECTIN [Suspect]
     Active Substance: IVERMECTIN
     Dosage: UNK UNK, QD (A SECOND COURSE WAS REPEATED AFTER 2 WEEKS)
     Route: 065
  5. IVERMECTIN [Suspect]
     Active Substance: IVERMECTIN
     Dosage: UNK UNK, QD (COMBINED REGIMEN OF ALBENDAZOLE AND IVERMECTIN)
     Route: 065

REACTIONS (3)
  - Strongyloidiasis [Recovering/Resolving]
  - Hypersensitivity [Recovered/Resolved]
  - Treatment failure [Unknown]
